FAERS Safety Report 4714430-1 (Version None)
Quarter: 2005Q3

REPORT INFORMATION
  Report Type: 
  Country: None (occurrence: None)
  Receive Date: 20050714
  Receipt Date: 20050706
  Transmission Date: 20060218
  Serious: Yes (Hospitalization)
  Sender: FDA-Public Use
  Company Number: US-JNJFOC-20050506485

PATIENT
  Sex: Female

DRUGS (25)
  1. TYLENOL [Suspect]
  2. TYLENOL [Suspect]
     Indication: DRUG USE FOR UNKNOWN INDICATION
     Dosage: UNKNOWN
  3. TRACLEER [Suspect]
     Indication: PULMONARY HYPERTENSION
     Route: 049
  4. FEOSOL [Concomitant]
  5. VITAMIN B-12 [Concomitant]
  6. KLOR-CON [Concomitant]
  7. ASPIRIN [Concomitant]
  8. BUTALBITAL [Concomitant]
  9. ATENOLOL [Concomitant]
  10. ACTONEL [Concomitant]
  11. CELEBREX [Concomitant]
  12. LIPITOR [Concomitant]
  13. FUROSEMIDE [Concomitant]
  14. COUMADIN [Concomitant]
  15. GUAIPHENESIN [Concomitant]
  16. AMBIEN [Concomitant]
  17. IMITREX [Concomitant]
  18. COMBIVENT [Concomitant]
  19. COMBIVENT [Concomitant]
  20. ADVAIR DISKUS 100/50 [Concomitant]
  21. ADVAIR DISKUS 100/50 [Concomitant]
  22. LISINOPRIL [Concomitant]
  23. SLOW RELEASE TEGRETOL [Concomitant]
  24. FLUMADINE [Concomitant]
  25. CLARINEX [Concomitant]

REACTIONS (2)
  - ABDOMINAL PAIN [None]
  - LIVER FUNCTION TEST ABNORMAL [None]
